FAERS Safety Report 8224101-5 (Version None)
Quarter: 2012Q1

REPORT INFORMATION
  Report Type: 
  Country: None (occurrence: None)
  Receive Date: 20120321
  Receipt Date: 20120316
  Transmission Date: 20120608
  Serious: Yes (Other)
  Sender: FDA-Public Use
  Company Number: GB-PFIZER INC-2012069105

PATIENT
  Age: 29 Year
  Sex: Female
  Weight: 56 kg

DRUGS (2)
  1. MISOPROSTOL [Suspect]
     Indication: OFF LABEL USE
     Dosage: 4 DF
     Route: 067
     Dates: start: 20120201
  2. MISOPROSTOL [Suspect]
     Indication: ABORTION INDUCED

REACTIONS (6)
  - TREMOR [None]
  - VOMITING [None]
  - DIARRHOEA [None]
  - PYREXIA [None]
  - RASH MACULO-PAPULAR [None]
  - FEELING COLD [None]
